FAERS Safety Report 21678392 (Version 1)
Quarter: 2022Q4

REPORT INFORMATION
  Report Type: Spontaneous
  Country: CN (occurrence: CN)
  Receive Date: 20221203
  Receipt Date: 20221203
  Transmission Date: 20230113
  Serious: Yes (Other)
  Sender: FDA-Public Use
  Company Number: CN-002147023-NVSC2022CN277668

PATIENT
  Age: 38 Year
  Sex: Male

DRUGS (4)
  1. MYCOPHENOLATE SODIUM [Suspect]
     Active Substance: MYCOPHENOLATE SODIUM
     Indication: Transplant rejection
     Dosage: 1 DOSAGE FORM, BID (0.54 G)
     Route: 048
     Dates: start: 20220901, end: 20221026
  2. MYCOPHENOLATE SODIUM [Suspect]
     Active Substance: MYCOPHENOLATE SODIUM
     Dosage: 1 DOSAGE FORM, BID (0.36 G)
     Route: 048
  3. TACROLIMUS [Concomitant]
     Active Substance: TACROLIMUS
     Indication: Product used for unknown indication
     Dosage: 1 DOSAGE FORM, QD (ASTELLAS IRELAND CO.LTD)
     Route: 048
     Dates: start: 20220901, end: 20221124
  4. PREDNISONE ACETATE [Concomitant]
     Active Substance: PREDNISONE ACETATE
     Indication: Product used for unknown indication
     Dosage: 1 DOSAGE FORM, QD
     Route: 048
     Dates: start: 20220901, end: 20221124

REACTIONS (3)
  - White blood cell count decreased [Recovering/Resolving]
  - Myelosuppression [Unknown]
  - Neutrophil count decreased [Unknown]

NARRATIVE: CASE EVENT DATE: 20221026
